FAERS Safety Report 18812999 (Version 2)
Quarter: 2022Q4

REPORT INFORMATION
  Report Type: Report from Study
  Country: US (occurrence: US)
  Receive Date: 20210131
  Receipt Date: 20221014
  Transmission Date: 20230113
  Serious: Yes (Other)
  Sender: FDA-Public Use
  Company Number: US-GILEAD-2021-0514841

PATIENT
  Age: 81 Year
  Sex: Female
  Weight: 55.782 kg

DRUGS (1)
  1. AMBRISENTAN [Suspect]
     Active Substance: AMBRISENTAN
     Indication: Product used for unknown indication
     Dosage: 10 MG
     Route: 065
     Dates: start: 20180125

REACTIONS (2)
  - Breast cancer [Not Recovered/Not Resolved]
  - Weight decreased [Not Recovered/Not Resolved]
